FAERS Safety Report 21465526 (Version 4)
Quarter: 2022Q4

REPORT INFORMATION
  Report Type: Report from Study
  Country: CA (occurrence: CA)
  Receive Date: 20221017
  Receipt Date: 20221206
  Transmission Date: 20230113
  Serious: Yes (Hospitalization, Other)
  Sender: FDA-Public Use
  Company Number: CA-TAKEDA-2021TUS070991

PATIENT
  Age: 64 Year
  Sex: Female

DRUGS (22)
  1. HUMAN IMMUNOGLOBULIN G [Suspect]
     Active Substance: HUMAN IMMUNOGLOBULIN G
     Indication: Secondary immunodeficiency
     Dosage: 12 GRAM, 1/WEEK
     Route: 065
     Dates: start: 20211027
  2. HUMAN IMMUNOGLOBULIN G [Suspect]
     Active Substance: HUMAN IMMUNOGLOBULIN G
     Dosage: 12 GRAM, 1/WEEK
     Route: 065
     Dates: start: 20211027
  3. HUMAN IMMUNOGLOBULIN G [Suspect]
     Active Substance: HUMAN IMMUNOGLOBULIN G
     Dosage: 12 GRAM, 1/WEEK
     Route: 050
     Dates: start: 20211027, end: 20220921
  4. HUMAN IMMUNOGLOBULIN G [Suspect]
     Active Substance: HUMAN IMMUNOGLOBULIN G
     Dosage: 12 GRAM, 1/WEEK
     Route: 058
     Dates: start: 20211027, end: 20220921
  5. XIGDUO XR [Concomitant]
     Active Substance: DAPAGLIFLOZIN PROPANEDIOL\METFORMIN HYDROCHLORIDE
     Dosage: 1 DOSAGE FORM, BID
     Route: 065
  6. TOUJEO [Concomitant]
     Active Substance: INSULIN GLARGINE
     Dosage: 65 INTERNATIONAL UNIT, BID
     Route: 065
  7. ONGLYZA [Concomitant]
     Active Substance: SAXAGLIPTIN HYDROCHLORIDE
     Dosage: 1 DOSAGE FORM, QD
     Route: 065
  8. AMLODIPINE BESYLATE [Concomitant]
     Active Substance: AMLODIPINE BESYLATE
     Indication: Blood pressure abnormal
     Dosage: 1 DOSAGE FORM, QD
     Route: 065
  9. INDAPAMIDE\PERINDOPRIL ERBUMINE [Concomitant]
     Active Substance: INDAPAMIDE\PERINDOPRIL ERBUMINE
     Dosage: UNK
     Route: 065
  10. TYLENOL WITH CODEINE [Concomitant]
     Active Substance: ACETAMINOPHEN\CODEINE PHOSPHATE
     Indication: Pain
     Dosage: UNK UNK, Q6HR
     Route: 065
  11. SYNTHROID [Concomitant]
     Active Substance: LEVOTHYROXINE SODIUM
     Indication: Thyroid disorder
     Dosage: 1 DOSAGE FORM, Q4HR
     Route: 065
  12. COLESEVELAM HYDROCHLORIDE [Concomitant]
     Active Substance: COLESEVELAM HYDROCHLORIDE
     Indication: Bile acid malabsorption
     Dosage: UNK
     Route: 065
  13. LATANOPROST [Concomitant]
     Active Substance: LATANOPROST
     Indication: Glaucoma
     Dosage: 1 DOSAGE FORM, QD
     Route: 050
  14. LOTEMAX [Concomitant]
     Active Substance: LOTEPREDNOL ETABONATE
     Indication: Adverse drug reaction
     Dosage: UNK
     Route: 065
  15. RANITIDINE [Concomitant]
     Active Substance: RANITIDINE
     Dosage: UNK
     Route: 065
  16. APO DEXTROAMPHETAMINE [Concomitant]
     Indication: Adverse drug reaction
     Dosage: UNK
     Route: 065
  17. VITAMIN D [Concomitant]
     Active Substance: VITAMIN D NOS
     Dosage: 1000 INTERNATIONAL UNIT
     Route: 065
  18. FISH OIL [Concomitant]
     Active Substance: FISH OIL
     Dosage: UNK
     Route: 065
  19. VITAMIN E [Concomitant]
     Active Substance: .ALPHA.-TOCOPHEROL
     Dosage: 400 INTERNATIONAL UNIT, BID
     Route: 065
  20. CALCIUM [Concomitant]
     Active Substance: CALCIUM
     Dosage: 600 MILLIGRAM
     Route: 065
  21. MAGNESIUM [Concomitant]
     Active Substance: MAGNESIUM
     Dosage: 400 MILLIGRAM
     Route: 065
  22. Fucidin h [Concomitant]
     Indication: Rash
     Dosage: UNK UNK, BID
     Route: 065

REACTIONS (11)
  - Cataract [Not Recovered/Not Resolved]
  - Diarrhoea [Recovered/Resolved]
  - Weight decreased [Unknown]
  - Limb injury [Recovered/Resolved]
  - Pyrexia [Not Recovered/Not Resolved]
  - Dyspnoea [Unknown]
  - Asthenia [Not Recovered/Not Resolved]
  - Puncture site discharge [Recovered/Resolved]
  - Erythema [Unknown]
  - Fatigue [Unknown]
  - Needle issue [Unknown]

NARRATIVE: CASE EVENT DATE: 20211101
